FAERS Safety Report 5870335-4 (Version None)
Quarter: 2008Q3

REPORT INFORMATION
  Report Type: 
  Country: None (occurrence: None)
  Receive Date: 20080904
  Receipt Date: 20070919
  Transmission Date: 20090109
  Serious: No
  Sender: FDA-Public Use
  Company Number: US-BRISTOL-MYERS SQUIBB COMPANY-13913926

PATIENT
  Age: 47 Year
  Sex: Female
  Weight: 128 kg

DRUGS (8)
  1. DEFINITY [Suspect]
     Indication: ECHOCARDIOGRAM
  2. HEPARIN [Concomitant]
  3. COUMADIN [Concomitant]
  4. ZOLOFT [Concomitant]
  5. CLONIDINE [Concomitant]
  6. LOPRESSOR [Concomitant]
  7. APRESOLINE [Concomitant]
  8. DARVOCET [Concomitant]

REACTIONS (1)
  - DYSPNOEA [None]
